FAERS Safety Report 11326619 (Version 3)
Quarter: 2015Q3

REPORT INFORMATION
  Report Type: Report from Study
  Country: IL (occurrence: IL)
  Receive Date: 20150731
  Receipt Date: 20150821
  Transmission Date: 20151125
  Serious: Yes (Hospitalization)
  Sender: FDA-Public Use
  Company Number: IL-BIOGENIDEC-2015BI105860

PATIENT
  Age: 38 Year
  Sex: Female
  Weight: 50 kg

DRUGS (7)
  1. MAGNESIUM [Concomitant]
     Active Substance: MAGNESIUM
  2. CYMBALTA [Concomitant]
     Active Substance: DULOXETINE HYDROCHLORIDE
  3. BONDORMIN [Concomitant]
  4. LANTON [Concomitant]
  5. MELIANE [Concomitant]
     Active Substance: ETHINYL ESTRADIOL\GESTODENE
  6. TECFIDERA [Suspect]
     Active Substance: DIMETHYL FUMARATE
     Indication: MULTIPLE SCLEROSIS
     Route: 048
     Dates: start: 20140902, end: 20150701
  7. AVAMYS [Concomitant]
     Active Substance: FLUTICASONE FUROATE

REACTIONS (5)
  - Escherichia urinary tract infection [Unknown]
  - Cervix carcinoma [Not Recovered/Not Resolved]
  - Microcytic anaemia [Unknown]
  - Hepatic congestion [Unknown]
  - Urinary tract infection enterococcal [Unknown]

NARRATIVE: CASE EVENT DATE: 201507
